FAERS Safety Report 4732818-X (Version None)
Quarter: 2005Q3

REPORT INFORMATION
  Report Type: 
  Country: None (occurrence: None)
  Receive Date: 20050801
  Receipt Date: 20050801
  Transmission Date: 20060218
  Serious: Yes (Other)
  Sender: FDA-Public Use
  Company Number: None

PATIENT
  Age: 72 Year
  Sex: Female
  Weight: 51 kg

DRUGS (1)
  1. TRILEPTAL [Suspect]
     Dosage: 150 MG   BID   PERIARTICU
     Route: 052
     Dates: start: 20050703, end: 20050703

REACTIONS (1)
  - RASH MACULO-PAPULAR [None]
